FAERS Safety Report 18331198 (Version 4)
Quarter: 2020Q4

REPORT INFORMATION
  Report Type: Spontaneous
  Country: JP (occurrence: JP)
  Receive Date: 20200930
  Receipt Date: 20201207
  Transmission Date: 20210113
  Serious: Yes (Life-Threatening, Hospitalization)
  Sender: FDA-Public Use
  Company Number: JP-CELGENEUS-JPN-20200906861

PATIENT
  Age: 79 Year
  Sex: Female
  Weight: 33.8 kg

DRUGS (11)
  1. GLIMEPIRIDE. [Concomitant]
     Active Substance: GLIMEPIRIDE
     Indication: TYPE 2 DIABETES MELLITUS
     Dosage: 2 MILLIGRAM
     Route: 048
     Dates: start: 20180706
  2. LIPACREON [Concomitant]
     Active Substance: PANCRELIPASE
     Indication: PANCREATIC CARCINOMA METASTATIC
     Dosage: 1800 MILLIGRAM
     Route: 048
     Dates: start: 20190521
  3. FUROSEMIDE. [Concomitant]
     Active Substance: FUROSEMIDE
     Indication: OEDEMA
     Dosage: 20 MILLIGRAM
     Route: 048
     Dates: start: 20200716
  4. SOLU-MEDROL [Concomitant]
     Active Substance: METHYLPREDNISOLONE SODIUM SUCCINATE
     Indication: PRODUCT USED FOR UNKNOWN INDICATION
     Dosage: 125 MILLIGRAM
     Route: 041
  5. GEMCITABINE. [Suspect]
     Active Substance: GEMCITABINE
     Indication: PANCREATIC CARCINOMA METASTATIC
     Dosage: 1200 MILLIGRAM
     Route: 041
     Dates: start: 20191003, end: 20200910
  6. ALOXI [Concomitant]
     Active Substance: PALONOSETRON HYDROCHLORIDE
     Indication: PROPHYLAXIS OF NAUSEA AND VOMITING
     Dosage: .75 MILLIGRAM
     Route: 041
     Dates: start: 20191003
  7. ABRAXANE [Suspect]
     Active Substance: PACLITAXEL
     Dosage: 110 MILLIGRAM
     Route: 041
     Dates: start: 20191031
  8. ABRAXANE [Suspect]
     Active Substance: PACLITAXEL
     Dosage: 30 PERCENT
     Route: 041
     Dates: start: 20191226
  9. TELMISARTAN. [Concomitant]
     Active Substance: TELMISARTAN
     Indication: HYPERTENSION
     Dosage: 10 MILLIGRAM
     Route: 048
  10. ABRAXANE [Suspect]
     Active Substance: PACLITAXEL
     Indication: PANCREATIC CARCINOMA METASTATIC
     Dosage: 155 MILLIGRAM
     Route: 041
     Dates: start: 20191003
  11. GLACTIV [Concomitant]
     Active Substance: SITAGLIPTIN
     Indication: TYPE 2 DIABETES MELLITUS
     Dosage: 50 MILLIGRAM
     Route: 048
     Dates: start: 20181221

REACTIONS (3)
  - Malaise [Unknown]
  - Stress cardiomyopathy [Recovered/Resolved]
  - Cardiac failure acute [Recovered/Resolved]

NARRATIVE: CASE EVENT DATE: 20200910
